FAERS Safety Report 9797961 (Version 2)
Quarter: 2014Q1

REPORT INFORMATION
  Report Type: Spontaneous
  Country: DE (occurrence: DE)
  Receive Date: 20140106
  Receipt Date: 20140209
  Transmission Date: 20141002
  Serious: Yes (Hospitalization)
  Sender: FDA-Public Use
  Company Number: PHHY2014DE000589

PATIENT
  Sex: Male

DRUGS (4)
  1. EXFORGE [Suspect]
     Indication: HYPERTENSION
     Dosage: 1 DF (160 MG VALS/ 5 MG AMLO),, QD
     Dates: start: 1999
  2. SEROQUEL [Interacting]
     Indication: DEPRESSION
     Dosage: 50 MG, UNK
     Dates: start: 20131115, end: 20140112
  3. LAMOTRIGINE [Concomitant]
     Indication: DEPRESSION
     Dosage: 200 MG, UNK
     Dates: start: 201310
  4. PAROXETIN [Concomitant]
     Indication: DEPRESSION
     Dosage: 30 MG, UNK
     Dates: start: 201310

REACTIONS (4)
  - Depression [Recovering/Resolving]
  - Oedema peripheral [Recovering/Resolving]
  - Heart rate decreased [Unknown]
  - Drug interaction [Unknown]
